FAERS Safety Report 12790077 (Version 1)
Quarter: 2016Q3

REPORT INFORMATION
  Report Type: Spontaneous
  Country: US (occurrence: US)
  Receive Date: 20160928
  Receipt Date: 20160928
  Transmission Date: 20161109
  Serious: No
  Sender: FDA-Public Use
  Company Number: US-009507513-1609USA009005

PATIENT
  Sex: Female
  Weight: 87.08 kg

DRUGS (1)
  1. NEXPLANON [Suspect]
     Active Substance: ETONOGESTREL
     Dosage: 68 MG/1 ROD EVERY 3 YEARS
     Route: 059
     Dates: start: 2015, end: 20160914

REACTIONS (2)
  - Device breakage [Recovered/Resolved]
  - Device kink [Recovered/Resolved]
